FAERS Safety Report 20848470 (Version 2)
Quarter: 2022Q2

REPORT INFORMATION
  Report Type: Spontaneous
  Country: US (occurrence: US)
  Receive Date: 20220519
  Receipt Date: 20220526
  Transmission Date: 20220720
  Serious: Yes (Life-Threatening, Other)
  Sender: FDA-Public Use
  Company Number: US-ELI_LILLY_AND_COMPANY-US202205003434

PATIENT
  Age: 52 Year
  Sex: Male

DRUGS (1)
  1. BEBTELOVIMAB [Suspect]
     Active Substance: BEBTELOVIMAB
     Indication: COVID-19
     Dosage: UNK, SINGLE
     Route: 065
     Dates: start: 202205, end: 202205

REACTIONS (4)
  - Anaphylactic reaction [Unknown]
  - Gastric haemorrhage [Unknown]
  - Atrial fibrillation [Unknown]
  - Tinnitus [Unknown]

NARRATIVE: CASE EVENT DATE: 20220505
